FAERS Safety Report 16034601 (Version 3)
Quarter: 2019Q2

REPORT INFORMATION
  Report Type: Spontaneous
  Country: US (occurrence: US)
  Receive Date: 20190305
  Receipt Date: 20190611
  Transmission Date: 20190711
  Serious: No
  Sender: FDA-Public Use
  Company Number: US-PFIZER INC-2019096916

PATIENT
  Age: 70 Year
  Sex: Female
  Weight: 76.19 kg

DRUGS (1)
  1. NEURONTIN [Suspect]
     Active Substance: GABAPENTIN
     Indication: NEUROPATHY PERIPHERAL
     Dosage: 300 MG, 3X/DAY
     Dates: end: 201601

REACTIONS (3)
  - Drug ineffective for unapproved indication [Unknown]
  - Skin lesion [Unknown]
  - Pruritus [Unknown]
